FAERS Safety Report 10991586 (Version 3)
Quarter: 2015Q2

REPORT INFORMATION
  Report Type: Spontaneous
  Country: US (occurrence: US)
  Receive Date: 20150406
  Receipt Date: 20150505
  Transmission Date: 20150821
  Serious: Yes (Hospitalization)
  Sender: FDA-Public Use
  Company Number: US-UNITED THERAPEUTICS-UNT-2015-003113

PATIENT
  Age: 40 Year
  Sex: Female
  Weight: 79.37 kg

DRUGS (4)
  1. REMODULIN [Suspect]
     Active Substance: TREPROSTINIL
     Dosage: 0.031 ?G/KG/MIN, CONTINUING
     Route: 058
  2. REMODULIN [Suspect]
     Active Substance: TREPROSTINIL
     Indication: PULMONARY HYPERTENSION
     Dosage: 0.027 ?G/KG/MIN, CONTINUING
     Route: 058
     Dates: start: 20150217
  3. COUMADIN [Concomitant]
     Active Substance: WARFARIN SODIUM
     Indication: PRODUCT USED FOR UNKNOWN INDICATION
  4. OPSUMIT [Concomitant]
     Active Substance: MACITENTAN
     Indication: PRODUCT USED FOR UNKNOWN INDICATION

REACTIONS (13)
  - Infusion site reaction [Unknown]
  - Upper-airway cough syndrome [Unknown]
  - Injection site discharge [Unknown]
  - Throat irritation [Unknown]
  - Nasal congestion [Unknown]
  - Infusion site erythema [Unknown]
  - Infusion site induration [Unknown]
  - Infusion site pain [Unknown]
  - Chest pain [Unknown]
  - Cough [Unknown]
  - Infusion site warmth [Unknown]
  - Pneumonia [Unknown]
  - Infusion site oedema [Unknown]

NARRATIVE: CASE EVENT DATE: 201503
